FAERS Safety Report 21867793 (Version 2)
Quarter: 2023Q1

REPORT INFORMATION
  Report Type: Spontaneous
  Country: SG (occurrence: SG)
  Receive Date: 20230116
  Receipt Date: 20230224
  Transmission Date: 20230418
  Serious: Yes (Hospitalization)
  Sender: FDA-Public Use
  Company Number: SG-GLAXOSMITHKLINE-SG2023GSK005148

PATIENT

DRUGS (3)
  1. VALACYCLOVIR [Suspect]
     Active Substance: VALACYCLOVIR HYDROCHLORIDE
     Indication: Herpes zoster
     Dosage: UNK
     Route: 048
  2. ACYCLOVIR [Suspect]
     Active Substance: ACYCLOVIR
     Indication: Herpes zoster
     Dosage: UNK
     Route: 061
  3. VITAMIN B SUPPLEMENT [Concomitant]
     Indication: Product used for unknown indication
     Dosage: UNK

REACTIONS (7)
  - Mental status changes [Unknown]
  - Somnolence [Unknown]
  - Confusional state [Unknown]
  - Mental disorder [Unknown]
  - Myoclonus [Unknown]
  - Neurological decompensation [Unknown]
  - Chorea [Unknown]
